FAERS Safety Report 10239616 (Version 1)
Quarter: 2014Q2

REPORT INFORMATION
  Report Type: Spontaneous
  Country: GB (occurrence: None)
  Receive Date: 20140612
  Receipt Date: 20140612
  Transmission Date: 20141212
  Serious: Yes (Other)
  Sender: FDA-Public Use
  Company Number: AUR-APL-2014-06309

PATIENT
  Age: 40 Year
  Sex: Male

DRUGS (8)
  1. CITALOPRAM [Suspect]
     Route: 048
  2. ACICLOVIR (ACICLOVIR) [Concomitant]
  3. LANSOPRAZOLE (LANSOPRAZOLE) [Concomitant]
  4. LORAZEPAM (LORAZEPAM) [Concomitant]
  5. MEROPENEM (MEROPENEM) [Concomitant]
  6. METOCLOPRAMIDE (METOCLOPRAMIDE) [Concomitant]
  7. ONDANSETRON (ONDANSETRON) [Concomitant]
  8. SULCONAZOLE (SULCONAZOLE) [Concomitant]

REACTIONS (2)
  - Germ cell cancer [None]
  - Alpha 1 foetoprotein increased [None]
